FAERS Safety Report 22243274 (Version 1)
Quarter: 2023Q2

REPORT INFORMATION
  Report Type: Spontaneous
  Country: US (occurrence: None)
  Receive Date: 20230421
  Receipt Date: 20230421
  Transmission Date: 20230722
  Serious: Yes (Other)
  Sender: FDA-Public Use
  Company Number: None

PATIENT
  Age: 54 Year
  Sex: Female
  Weight: 48.6 kg

DRUGS (3)
  1. VANCOMYCIN [Suspect]
     Active Substance: VANCOMYCIN
     Indication: Endocarditis
     Dosage: FREQUENCY : TWICE A DAY;?
     Route: 042
     Dates: start: 20230322, end: 20230328
  2. CEFTRIAXONE [Suspect]
     Active Substance: CEFTRIAXONE
     Indication: Endocarditis
     Dosage: FREQUENCY : DAILY;?
     Route: 042
     Dates: start: 20230322, end: 20230330
  3. DAPTOMYCIN [Concomitant]
     Active Substance: DAPTOMYCIN

REACTIONS (11)
  - Pruritus [None]
  - Renal pain [None]
  - Rash pruritic [None]
  - Dyspnoea [None]
  - Hypersensitivity [None]
  - Pain in extremity [None]
  - Tachycardia [None]
  - Leukopenia [None]
  - Myalgia [None]
  - Faeces discoloured [None]
  - Acute kidney injury [None]

NARRATIVE: CASE EVENT DATE: 20230328
